FAERS Safety Report 4647797-3 (Version None)
Quarter: 2005Q2

REPORT INFORMATION
  Report Type: 
  Country: None (occurrence: None)
  Receive Date: 20050426
  Receipt Date: 20050411
  Transmission Date: 20051028
  Serious: Yes (Hospitalization)
  Sender: FDA-Public Use
  Company Number: MK200504-0141-1

PATIENT
  Age: 29 Year
  Sex: Male

DRUGS (2)
  1. BAROSPERSE ENEMA KT 454GM/16OZ BARIUM SULFATE [Suspect]
     Indication: ENEMA ADMINISTRATION
     Dosage: ONE TIME, PR
  2. CORTICOSTEROIDS [Concomitant]

REACTIONS (11)
  - AIR EMBOLISM [None]
  - CONTRAST MEDIA REACTION [None]
  - HEPATIC STEATOSIS [None]
  - HYPERHIDROSIS [None]
  - LIVER DISORDER [None]
  - PELVIC PAIN [None]
  - POST PROCEDURAL COMPLICATION [None]
  - PSEUDOPOLYP [None]
  - PULMONARY OEDEMA [None]
  - PYREXIA [None]
  - SPLEEN DISORDER [None]
